APPROVED DRUG PRODUCT: FLOXIN OTIC
Active Ingredient: OFLOXACIN
Strength: 0.3% **Federal Register determination that product was not discontinued or withdrawn for safety or effectiveness reasons**
Dosage Form/Route: SOLUTION/DROPS;OTIC
Application: N020799 | Product #001
Applicant: DAIICHI PHARMACEUTICAL CORP
Approved: Dec 16, 1997 | RLD: Yes | RS: No | Type: DISCN